FAERS Safety Report 4310458-4 (Version None)
Quarter: 2004Q1

REPORT INFORMATION
  Report Type: 
  Country: None (occurrence: None)
  Receive Date: 20040302
  Receipt Date: 20040218
  Transmission Date: 20041129
  Serious: Yes (Death)
  Sender: FDA-Public Use
  Company Number: 2004-DE-00463DE

PATIENT
  Age: 80 Year
  Sex: Female

DRUGS (6)
  1. SPIRIVA [Suspect]
     Indication: CHRONIC OBSTRUCTIVE AIRWAYS DISEASE
     Dosage: 18 MCG (18 MCG, 1 IN 1 D)
     Route: 055
     Dates: start: 20020101, end: 20030101
  2. OXYGEN [Concomitant]
  3. ANTIDEPRESSANTS [Concomitant]
  4. LEVOTHYROXINE SODIUM [Concomitant]
  5. PREDNISONE [Concomitant]
  6. ZYPREXA [Concomitant]

REACTIONS (1)
  - SUICIDE ATTEMPT [None]
